FAERS Safety Report 4525415-2 (Version None)
Quarter: 2004Q4

REPORT INFORMATION
  Report Type: 
  Country: None (occurrence: None)
  Receive Date: 20041213
  Receipt Date: 20041202
  Transmission Date: 20050328
  Serious: Yes (Disabling)
  Sender: FDA-Public Use
  Company Number: GB-GLAXOSMITHKLINE-B0359043A

PATIENT
  Age: 50 Year
  Sex: Male
  Weight: 33.5 kg

DRUGS (8)
  1. AVANDIA [Suspect]
     Dosage: 8MG UNKNOWN
     Route: 048
     Dates: start: 20010903, end: 20040901
  2. IRBESARTAN [Concomitant]
     Dosage: 300MG PER DAY
     Route: 048
     Dates: start: 20010316
  3. ATORVASTATIN [Concomitant]
     Indication: DIABETES MELLITUS
     Dosage: 20MG PER DAY
     Route: 048
     Dates: start: 19981019
  4. AMLODIPINE [Concomitant]
     Dosage: 10MG PER DAY
     Route: 048
     Dates: start: 19981002
  5. DOXAZOSIN [Concomitant]
     Dosage: 4MG PER DAY
     Route: 048
     Dates: start: 20001009
  6. GLUCOPHAGE [Concomitant]
     Indication: DIABETES MELLITUS
     Dosage: 1G TWICE PER DAY
     Route: 048
     Dates: start: 19980103
  7. DIGOXIN [Concomitant]
     Indication: ATRIAL FIBRILLATION
     Dosage: 250MCG PER DAY
     Route: 048
     Dates: start: 20040614
  8. WARFARIN SODIUM [Concomitant]
     Indication: ATRIAL FIBRILLATION
     Route: 048
     Dates: start: 20040614

REACTIONS (3)
  - ATRIAL FIBRILLATION [None]
  - CARDIAC FAILURE [None]
  - FLUID RETENTION [None]
